FAERS Safety Report 16124160 (Version 2)
Quarter: 2019Q2

REPORT INFORMATION
  Report Type: Spontaneous
  Country: US (occurrence: US)
  Receive Date: 20190327
  Receipt Date: 20190410
  Transmission Date: 20190711
  Serious: No
  Sender: FDA-Public Use
  Company Number: US-TEVA-2019-US-1019387

PATIENT
  Sex: Male

DRUGS (2)
  1. CLONAZEPAM TABLETS [Suspect]
     Active Substance: CLONAZEPAM
     Indication: ANXIETY DISORDER
     Route: 065
     Dates: start: 201811
  2. HYDROXYZINE [Concomitant]
     Active Substance: HYDROXYZINE HYDROCHLORIDE

REACTIONS (2)
  - Product substitution issue [Unknown]
  - Therapeutic product effect decreased [Unknown]
